FAERS Safety Report 7678410-9 (Version None)
Quarter: 2011Q3

REPORT INFORMATION
  Report Type: 
  Country: None (occurrence: None)
  Receive Date: 20110811
  Receipt Date: 20110805
  Transmission Date: 20111222
  Serious: Yes (Hospitalization)
  Sender: FDA-Public Use
  Company Number: GB-PFIZER INC-2011180716

PATIENT
  Age: 37 Year
  Sex: Female

DRUGS (1)
  1. HEMABATE [Suspect]
     Dosage: UNK

REACTIONS (1)
  - CARDIAC ARREST [None]
